FAERS Safety Report 16296430 (Version 6)
Quarter: 2019Q4

REPORT INFORMATION
  Report Type: Spontaneous
  Country: US (occurrence: US)
  Receive Date: 20190510
  Receipt Date: 20191002
  Transmission Date: 20200122
  Serious: Yes (Other)
  Sender: FDA-Public Use
  Company Number: US-PFIZER INC-2019191381

PATIENT
  Age: 56 Year
  Sex: Female

DRUGS (5)
  1. CHANTIX [Concomitant]
     Active Substance: VARENICLINE TARTRATE
     Dosage: UNK
  2. NICOTROL [Concomitant]
     Active Substance: NICOTINE
     Dosage: UNK
  3. NICOTROL [Suspect]
     Active Substance: NICOTINE
     Indication: SMOKING CESSATION THERAPY
     Dosage: UNK
  4. CHANTIX [Suspect]
     Active Substance: VARENICLINE TARTRATE
     Indication: SMOKING CESSATION THERAPY
     Dosage: UNK
  5. PRISTIQ EXTENDED-RELEASE [Suspect]
     Active Substance: DESVENLAFAXINE SUCCINATE
     Indication: DEPRESSION
     Dosage: 100 MG, DAILY
     Route: 048

REACTIONS (12)
  - Withdrawal syndrome [Unknown]
  - Dyspnoea [Unknown]
  - Insomnia [Unknown]
  - Malaise [Unknown]
  - Weight fluctuation [Unknown]
  - Confusional state [Unknown]
  - Myocardial infarction [Unknown]
  - Irritability [Unknown]
  - Chronic obstructive pulmonary disease [Unknown]
  - Stress [Unknown]
  - Feeling abnormal [Unknown]
  - Lung disorder [Unknown]
